FAERS Safety Report 7906783-8 (Version None)
Quarter: 2011Q4

REPORT INFORMATION
  Report Type: 
  Country: None (occurrence: None)
  Receive Date: 20111110
  Receipt Date: 20111107
  Transmission Date: 20120403
  Serious: Yes (Other)
  Sender: FDA-Public Use
  Company Number: CA-TEVA-308189USA

PATIENT
  Age: 19 Month
  Sex: Female

DRUGS (7)
  1. THIOTEPA [Suspect]
     Indication: BRAIN NEOPLASM MALIGNANT
     Dosage: 10 MG/KG/DAY FOR 2 DOSES
  2. METHOTREXATE [Suspect]
     Indication: BRAIN NEOPLASM MALIGNANT
     Dosage: 8 G/M2
  3. CISPLATIN [Suspect]
     Indication: BRAIN NEOPLASM MALIGNANT
     Dosage: 3.5 MG/KG
  4. CARBOPLATIN [Suspect]
     Indication: BRAIN NEOPLASM MALIGNANT
     Dosage: 17 MG/KG/DAY
  5. ETOPOSIDE [Suspect]
     Indication: BRAIN NEOPLASM MALIGNANT
     Dosage: 2.5 MG/KG/DAY
  6. VINCRISTINE [Suspect]
     Indication: BRAIN NEOPLASM MALIGNANT
     Dosage: 0.05 MG/KG/DAY(TWO DOSES)
  7. CYCLOPHOSPHAMIDE [Suspect]
     Indication: BRAIN NEOPLASM MALIGNANT
     Dosage: 60 MG/KG/DAY

REACTIONS (1)
  - LEUKOENCEPHALOPATHY [None]
